FAERS Safety Report 5522533-7 (Version None)
Quarter: 2007Q4

REPORT INFORMATION
  Report Type: 
  Country: None (occurrence: None)
  Receive Date: 20071120
  Receipt Date: 20071115
  Transmission Date: 20080405
  Serious: Yes (Hospitalization, Other)
  Sender: FDA-Public Use
  Company Number: US-ELI_LILLY_AND_COMPANY-US200711003510

PATIENT
  Age: 73 Year
  Sex: Male

DRUGS (4)
  1. HUMALOG MIX 75/25 [Suspect]
  2. HUMALOG MIX 75/25 [Suspect]
  3. AMARYL [Concomitant]
  4. GLUCOPHAGE [Concomitant]
     Dosage: 500 MG, DAILY (1/D)

REACTIONS (4)
  - BLOOD GLUCOSE INCREASED [None]
  - CORONARY ARTERY BYPASS [None]
  - LOSS OF CONSCIOUSNESS [None]
  - PERICARDIAL HAEMORRHAGE [None]
